FAERS Safety Report 23542182 (Version 3)
Quarter: 2024Q2

REPORT INFORMATION
  Report Type: Report from Study
  Country: US (occurrence: US)
  Receive Date: 20240220
  Receipt Date: 20240627
  Transmission Date: 20240715
  Serious: No
  Sender: FDA-Public Use
  Company Number: US-ROCHE-3423808

PATIENT
  Age: 75 Year
  Sex: Female
  Weight: 50.8 kg

DRUGS (3)
  1. ROZLYTREK [Suspect]
     Active Substance: ENTRECTINIB
     Indication: Colon cancer stage IV
     Dosage: YES
     Route: 065
     Dates: start: 20230915
  2. ROZLYTREK [Suspect]
     Active Substance: ENTRECTINIB
     Indication: Colorectal cancer metastatic
     Dosage: TAKE 3 CAPSULE(S) BY MOUTH DAILY
     Route: 048
  3. ROZLYTREK [Suspect]
     Active Substance: ENTRECTINIB
     Indication: Colon cancer

REACTIONS (4)
  - Off label use [Unknown]
  - Intentional product misuse [Unknown]
  - Hypersensitivity [Unknown]
  - Seasonal allergy [Unknown]

NARRATIVE: CASE EVENT DATE: 20230915
